FAERS Safety Report 9618769 (Version 3)
Quarter: 2013Q4

REPORT INFORMATION
  Report Type: Report from Study
  Country: IL (occurrence: IL)
  Receive Date: 20131014
  Receipt Date: 20131203
  Transmission Date: 20140711
  Serious: Yes (Death, Other)
  Sender: FDA-Public Use
  Company Number: IL-CELGENEUS-082-21880-13100301

PATIENT
  Age: 50 Year
  Sex: Male
  Weight: 140 kg

DRUGS (23)
  1. REVLIMID [Suspect]
     Indication: PLASMA CELL MYELOMA
     Dosage: 25 MILLIGRAM
     Route: 048
     Dates: start: 20110927, end: 20111018
  2. REVLIMID [Suspect]
     Dosage: 15 MILLIGRAM
     Route: 048
     Dates: start: 20130704, end: 20130724
  3. REVLIMID [Suspect]
     Dosage: 15 MILLIGRAM
     Route: 048
     Dates: start: 20130731, end: 20130820
  4. REVLIMID [Suspect]
     Dosage: 15 MILLIGRAM
     Route: 048
     Dates: start: 20130828, end: 20130904
  5. DEXAMETHASONE [Suspect]
     Indication: PLASMA CELL MYELOMA
     Route: 065
     Dates: start: 20090611, end: 20090823
  6. DEXAMETHASONE [Suspect]
     Dosage: CYCLE 1
     Route: 065
     Dates: start: 20110928, end: 20111108
  7. DEXAMETHASONE [Suspect]
     Dosage: 16 MILLIGRAM
     Route: 065
     Dates: start: 20111122, end: 20111122
  8. DEXAMETHASONE [Suspect]
     Dosage: 20 MILLIGRAM
     Route: 065
     Dates: start: 20111213, end: 20130613
  9. CARFILZOMIB [Suspect]
     Indication: PLASMA CELL MYELOMA
     Dosage: 46 MILLIGRAM
     Route: 065
     Dates: start: 20110927, end: 20110928
  10. CARFILZOMIB [Suspect]
     Dosage: 27 MILLIGRAM/SQ. METER
     Route: 065
     Dates: start: 20111004, end: 20111012
  11. CARFILZOMIB [Suspect]
     Dosage: 27 MILLIGRAM/SQ. METER
     Route: 065
     Dates: start: 20111011, end: 20120814
  12. CARFILZOMIB [Suspect]
     Dosage: 27 MILLIGRAM/SQ. METER
     Route: 065
     Dates: start: 20110828, end: 20130130
  13. ACYCLOVIR [Concomitant]
     Indication: ANTIVIRAL PROPHYLAXIS
     Dosage: 400 MILLIGRAM
     Route: 048
     Dates: start: 20110926
  14. CLEXAN [Concomitant]
     Indication: ANTICOAGULANT THERAPY
     Dosage: 80 MILLIGRAM
     Route: 058
     Dates: start: 20120424
  15. CLEXAN [Concomitant]
     Indication: ANTIPLATELET THERAPY
     Route: 058
  16. CLEXAN [Concomitant]
     Indication: DEEP VEIN THROMBOSIS
     Route: 058
  17. CYMBALTA [Concomitant]
     Indication: NEUROPATHY PERIPHERAL
     Dosage: 60 MILLIGRAM
     Route: 048
     Dates: start: 20130213
  18. CYMBALTA [Concomitant]
     Indication: ANTIPLATELET THERAPY
     Route: 048
  19. CYMBALTA [Concomitant]
     Indication: DEEP VEIN THROMBOSIS
     Route: 048
  20. LOSEC [Concomitant]
     Indication: PROPHYLAXIS AGAINST GASTROINTESTINAL ULCER
     Dosage: 20 MILLIGRAM
     Route: 048
     Dates: start: 2009
  21. RESPRIM [Concomitant]
     Indication: ANTIBIOTIC PROPHYLAXIS
     Route: 048
     Dates: start: 20110926
  22. RESPRIM [Concomitant]
     Indication: ANTIPLATELET THERAPY
     Route: 048
  23. RESPRIM [Concomitant]
     Indication: DEEP VEIN THROMBOSIS
     Route: 048

REACTIONS (1)
  - Pancreatic carcinoma metastatic [Fatal]
